FAERS Safety Report 9035381 (Version 1)
Quarter: 2013Q1

REPORT INFORMATION
  Report Type: Report from Study
  Country: US (occurrence: US)
  Receive Date: 20130129
  Receipt Date: 20130129
  Transmission Date: 20140127
  Serious: Yes (Other)
  Sender: FDA-Public Use
  Company Number: US-ABBOTT-12P-163-0899140-00

PATIENT
  Age: 64 Year
  Sex: Female
  Weight: 72.64 kg

DRUGS (13)
  1. HUMIRA 40 MG/0.8 ML PEN [Suspect]
     Indication: ANKYLOSING SPONDYLITIS
     Route: 058
     Dates: start: 20111226
  2. HUMIRA 40 MG/0.8 ML PEN [Suspect]
     Indication: PSORIATIC ARTHROPATHY
  3. PLAQUENIL [Concomitant]
     Indication: ARTHRITIS
  4. VITAMIN B12 [Concomitant]
     Indication: HYPOVITAMINOSIS
  5. LORTAB [Concomitant]
     Indication: PAIN
  6. GABAPENTIN [Concomitant]
     Indication: NEURALGIA
  7. PRILOSEC [Concomitant]
     Indication: GASTROOESOPHAGEAL REFLUX DISEASE
  8. TOPROL [Concomitant]
     Indication: HYPERTENSION
  9. CYMBALTA [Concomitant]
     Indication: DEPRESSION
  10. ESTRADIOL [Concomitant]
     Indication: HORMONE REPLACEMENT THERAPY
  11. PHENTERMINE [Concomitant]
     Indication: FATIGUE
  12. ARMOUR THYROID [Concomitant]
     Indication: HYPOTHYROIDISM
  13. STOOL SOFTENER [Concomitant]
     Indication: CONSTIPATION

REACTIONS (3)
  - Cataract operation [Recovered/Resolved]
  - Cataract operation [Recovered/Resolved]
  - Swelling face [Recovered/Resolved]
